FAERS Safety Report 17087303 (Version 2)
Quarter: 2019Q4

REPORT INFORMATION
  Report Type: Spontaneous
  Country: IT (occurrence: IT)
  Receive Date: 20191128
  Receipt Date: 20191219
  Transmission Date: 20200122
  Serious: Yes (Other)
  Sender: FDA-Public Use
  Company Number: IT-PFIZER INC-2019512857

PATIENT
  Age: 72 Year
  Sex: Female
  Weight: 63 kg

DRUGS (1)
  1. PACLITAXEL. [Suspect]
     Active Substance: PACLITAXEL
     Indication: BREAST CANCER
     Dosage: UNK
     Route: 042

REACTIONS (2)
  - Deafness bilateral [Recovered/Resolved with Sequelae]
  - Neurosensory hypoacusis [Recovered/Resolved with Sequelae]

NARRATIVE: CASE EVENT DATE: 20190906
